FAERS Safety Report 6033221-5 (Version None)
Quarter: 2009Q1

REPORT INFORMATION
  Report Type: 
  Country: None (occurrence: None)
  Receive Date: 20090109
  Receipt Date: 20090102
  Transmission Date: 20090719
  Serious: Yes (Other)
  Sender: FDA-Public Use
  Company Number: GB-ELI_LILLY_AND_COMPANY-GB200901000154

PATIENT
  Age: 59 Year
  Sex: Female
  Weight: 81 kg

DRUGS (12)
  1. BYETTA [Suspect]
     Indication: DIABETES MELLITUS
     Dosage: 5 UG, DAILY (1/D)
     Route: 058
     Dates: start: 20081118, end: 20081201
  2. BYETTA [Suspect]
     Dosage: 5 UG, 2/D
     Route: 058
     Dates: start: 20081204, end: 20081205
  3. ASPIRIN [Concomitant]
     Dosage: 75 MG, DAILY (1/D)
     Route: 065
  4. EZETIMIBE [Concomitant]
     Dosage: 10 MG, DAILY (1/D)
     Route: 065
  5. FENOFIBRATE [Concomitant]
     Dosage: 200 MG, DAILY (1/D)
     Route: 065
  6. FUROSEMIDE [Concomitant]
     Dosage: 20 MG, DAILY (1/D)
     Route: 065
  7. IRBESARTAN [Concomitant]
     Dosage: 300 D/F, DAILY (1/D)
     Route: 065
  8. ISOSORBIDE MONONITRATE [Concomitant]
     Dosage: 20 MG, 2/D
     Route: 065
  9. LANSOPRAZOLE [Concomitant]
     Dosage: 30 MG, DAILY (1/D)
     Route: 065
  10. METOPROLOL TARTRATE [Concomitant]
     Dosage: 50 MG, 2/D
     Route: 065
  11. NICORANDIL [Concomitant]
     Dosage: 10 MG, 2/D
     Route: 065
  12. NOVORAPID [Concomitant]
     Dosage: UNK, UNKNOWN
     Route: 065

REACTIONS (4)
  - EYE IRRITATION [None]
  - EYE SWELLING [None]
  - FLUSHING [None]
  - THROAT TIGHTNESS [None]
